FAERS Safety Report 7169856-6 (Version None)
Quarter: 2010Q4

REPORT INFORMATION
  Report Type: 
  Country: None (occurrence: None)
  Receive Date: 20101217
  Receipt Date: 20101208
  Transmission Date: 20110411
  Serious: Yes (Hospitalization)
  Sender: FDA-Public Use
  Company Number: PHHO2010FR17822

PATIENT
  Sex: Female
  Weight: 36.5 kg

DRUGS (8)
  1. ZOLEDRONATE T29581+SOLINJ+BM [Suspect]
     Indication: BONE SARCOMA
     Dosage: 4 MG, UNK
     Route: 042
     Dates: start: 20100311
  2. VP-16 [Suspect]
     Dosage: 98MG
     Route: 042
     Dates: start: 20100329
  3. IFOSFAMIDE [Suspect]
     Dosage: 3.9MG
     Route: 042
     Dates: start: 20100329
  4. METHOTREXATE [Concomitant]
  5. RIFADIN [Concomitant]
  6. CIFLOX [Concomitant]
  7. ZOPHREN [Concomitant]
  8. STEDIRIL [Concomitant]

REACTIONS (8)
  - CHEILITIS [None]
  - FEBRILE BONE MARROW APLASIA [None]
  - HYPOKALAEMIA [None]
  - HYPOPHOSPHATAEMIA [None]
  - LIP ULCERATION [None]
  - METABOLIC ACIDOSIS [None]
  - MUCOSAL INFLAMMATION [None]
  - RENAL TUBULAR DISORDER [None]
